FAERS Safety Report 9639283 (Version 2)
Quarter: 2013Q4

REPORT INFORMATION
  Report Type: Spontaneous
  Country: US (occurrence: US)
  Receive Date: 20131022
  Receipt Date: 20131104
  Transmission Date: 20140711
  Serious: Yes (Other)
  Sender: FDA-Public Use
  Company Number: ALCN2013US005293

PATIENT
  Age: 66 Year
  Sex: Male
  Weight: 86.17 kg

DRUGS (4)
  1. NEVANAC [Suspect]
     Indication: POSTOPERATIVE CARE
     Dosage: UNK GTT, TID
     Route: 047
     Dates: start: 20110307
  2. VIGAMOX [Suspect]
     Indication: POSTOPERATIVE CARE
     Dosage: UNK GTT, QID
     Route: 047
     Dates: start: 20110307, end: 20110314
  3. VIGAMOX [Suspect]
     Dosage: UNK GTT, BID
     Route: 047
     Dates: start: 20110314
  4. PRED FORTE [Concomitant]
     Indication: POSTOPERATIVE CARE
     Dosage: UNK GTT, QID
     Route: 047
     Dates: start: 20110307

REACTIONS (7)
  - Keratitis [Unknown]
  - Visual acuity reduced [Unknown]
  - Eye pain [Unknown]
  - Eye irritation [Unknown]
  - Eye discharge [Unknown]
  - Ocular hyperaemia [Unknown]
  - Asthenopia [Unknown]
